FAERS Safety Report 17510288 (Version 1)
Quarter: 2020Q1

REPORT INFORMATION
  Report Type: Spontaneous
  Country: US (occurrence: US)
  Receive Date: 20200306
  Receipt Date: 20200306
  Transmission Date: 20200409
  Serious: Yes (Other)
  Sender: FDA-Public Use
  Company Number: None

PATIENT
  Age: 11 Month
  Sex: Male
  Weight: 5.96 kg

DRUGS (3)
  1. SYNAGIS [Suspect]
     Active Substance: PALIVIZUMAB
     Indication: PREMATURE BABY
     Dosage: ?          OTHER FREQUENCY:ONCE A MONTH;?
     Route: 030
     Dates: start: 20191217, end: 20200305
  2. SYNAGIS [Suspect]
     Active Substance: PALIVIZUMAB
     Indication: ANTIVIRAL PROPHYLAXIS
     Dosage: ?          OTHER FREQUENCY:ONCE A MONTH;?
     Route: 030
     Dates: start: 20191217, end: 20200305
  3. SYNAGIS [Suspect]
     Active Substance: PALIVIZUMAB
     Indication: LOW BIRTH WEIGHT BABY
     Dosage: ?          OTHER FREQUENCY:ONCE A MONTH;?
     Route: 030
     Dates: start: 20191217, end: 20200305

REACTIONS (1)
  - Respiratory syncytial virus test positive [None]

NARRATIVE: CASE EVENT DATE: 20200305
